FAERS Safety Report 21618213 (Version 3)
Quarter: 2023Q1

REPORT INFORMATION
  Report Type: Report from Study
  Country: US (occurrence: US)
  Receive Date: 20221119
  Receipt Date: 20230116
  Transmission Date: 20230418
  Serious: No
  Sender: FDA-Public Use
  Company Number: US-ABBVIE-4205836

PATIENT
  Sex: Female

DRUGS (3)
  1. IMBRUVICA [Suspect]
     Active Substance: IBRUTINIB
     Indication: Chronic lymphocytic leukaemia
     Route: 048
     Dates: start: 20221008
  2. IMBRUVICA [Suspect]
     Active Substance: IBRUTINIB
     Indication: Chronic lymphocytic leukaemia
     Route: 048
     Dates: start: 20221008
  3. ALLOPURINOL [Concomitant]
     Active Substance: ALLOPURINOL
     Indication: Product used for unknown indication

REACTIONS (9)
  - Weight increased [Not Recovered/Not Resolved]
  - Swelling face [Recovering/Resolving]
  - Sinus disorder [Recovered/Resolved]
  - Fatigue [Not Recovered/Not Resolved]
  - Neuropathy peripheral [Recovering/Resolving]
  - Energy increased [Recovering/Resolving]
  - Blood potassium decreased [Unknown]
  - Stomatitis [Not Recovered/Not Resolved]
  - Thyroid hormones increased [Unknown]
